FAERS Safety Report 17784245 (Version 7)
Quarter: 2022Q1

REPORT INFORMATION
  Report Type: Spontaneous
  Country: US (occurrence: US)
  Receive Date: 20200513
  Receipt Date: 20220113
  Transmission Date: 20220423
  Serious: Yes (Other)
  Sender: FDA-Public Use
  Company Number: US-PFIZER INC-2020097008

PATIENT
  Age: 71 Year
  Sex: Female

DRUGS (1)
  1. XELJANZ [Suspect]
     Active Substance: TOFACITINIB CITRATE
     Dosage: 5 MG, 2X/DAY

REACTIONS (10)
  - Heart rate irregular [Unknown]
  - Near death experience [Unknown]
  - Bradycardia [Unknown]
  - Arthritis [Unknown]
  - Condition aggravated [Unknown]
  - Confusional state [Unknown]
  - Pain in extremity [Unknown]
  - Neck pain [Unknown]
  - Headache [Unknown]
  - Gait disturbance [Unknown]
